FAERS Safety Report 8860863 (Version 3)
Quarter: 2013Q4

REPORT INFORMATION
  Report Type: Spontaneous
  Country: US (occurrence: US)
  Receive Date: 20121026
  Receipt Date: 20131216
  Transmission Date: 20140711
  Serious: No
  Sender: FDA-Public Use
  Company Number: US-BIOGENIDEC-2012BI045136

PATIENT
  Sex: Female

DRUGS (5)
  1. AVONEX [Suspect]
     Indication: MULTIPLE SCLEROSIS
     Route: 030
     Dates: start: 19991001, end: 2003
  2. AVONEX [Suspect]
     Indication: MULTIPLE SCLEROSIS
     Route: 030
     Dates: start: 2003, end: 201208
  3. AVONEX [Suspect]
     Indication: MULTIPLE SCLEROSIS
     Route: 030
     Dates: start: 201209, end: 201209
  4. AVONEX [Suspect]
     Indication: MULTIPLE SCLEROSIS
     Route: 030
     Dates: start: 201210
  5. ANASTROZOLE [Concomitant]
     Indication: BREAST CANCER

REACTIONS (6)
  - Drug administered at inappropriate site [Recovered/Resolved]
  - Injection site mass [Recovered/Resolved]
  - Drug prescribing error [Recovered/Resolved]
  - Injection site bruising [Recovered/Resolved]
  - Tendonitis [Not Recovered/Not Resolved]
  - Bone pain [Recovered/Resolved]
